FAERS Safety Report 7431622-1 (Version None)
Quarter: 2011Q2

REPORT INFORMATION
  Report Type: 
  Country: None (occurrence: None)
  Receive Date: 20110422
  Receipt Date: 20110215
  Transmission Date: 20111010
  Serious: No
  Sender: FDA-Public Use
  Company Number: US-TEVA-267588USA

PATIENT
  Sex: Female
  Weight: 84.898 kg

DRUGS (3)
  1. PLAN B ONE-STEP [Suspect]
     Indication: POST COITAL CONTRACEPTION
     Dosage: 1.5 MILLIGRAM;
     Route: 048
     Dates: start: 20110211, end: 20110211
  2. PROVENTIL [Concomitant]
     Indication: EMPHYSEMA
  3. SYNTHROID [Concomitant]
     Indication: THYROIDECTOMY

REACTIONS (1)
  - PELVIC PAIN [None]
